FAERS Safety Report 9887213 (Version 1)
Quarter: 2014Q1

REPORT INFORMATION
  Report Type: Spontaneous
  Country: US (occurrence: US)
  Receive Date: 20140211
  Receipt Date: 20140211
  Transmission Date: 20141002
  Serious: No
  Sender: FDA-Public Use
  Company Number: US-BIOGENIDEC-2014BI010016

PATIENT
  Age: 43 Year
  Sex: Female

DRUGS (7)
  1. TECFIDERA [Suspect]
     Indication: MULTIPLE SCLEROSIS
     Dates: start: 20140113, end: 20140120
  2. TECFIDERA [Suspect]
     Indication: MULTIPLE SCLEROSIS
     Dates: start: 20140121
  3. CYMBALTA [Concomitant]
  4. LUNESTA [Concomitant]
  5. TRAZODONE [Concomitant]
  6. VALIUM [Concomitant]
  7. PRISTIQ [Concomitant]

REACTIONS (1)
  - Bronchitis [Unknown]
